FAERS Safety Report 7299830-0 (Version None)
Quarter: 2011Q1

REPORT INFORMATION
  Report Type: 
  Country: None (occurrence: None)
  Receive Date: 20110217
  Receipt Date: 20110210
  Transmission Date: 20110831
  Serious: Yes (Life-Threatening, Hospitalization)
  Sender: FDA-Public Use
  Company Number: US-BAYER-2011-015330

PATIENT
  Sex: Female

DRUGS (13)
  1. AMBIEN [Concomitant]
     Dosage: UNK
     Dates: start: 20060101
  2. ALEMTUZUMAB 10/1ML [Suspect]
     Indication: MULTIPLE SCLEROSIS
     Dosage: 24 MG, QD
     Route: 042
     Dates: start: 20090112, end: 20090128
  3. ACETAZOLAMIDE [Concomitant]
     Dosage: UNK
     Dates: start: 20070101
  4. ABILIFY [Concomitant]
     Dosage: UNK
     Dates: start: 20080701
  5. VITAMIN D [Concomitant]
     Dosage: UNK
     Dates: start: 20100628
  6. ALEMTUZUMAB 10/1ML [Suspect]
     Dosage: UNK
     Route: 042
     Dates: start: 20100111, end: 20100113
  7. KLONOPIN [Concomitant]
     Dosage: UNK
     Dates: start: 20060101
  8. ADVAIR [Concomitant]
     Dosage: UNK
     Dates: start: 20090628
  9. SYNTHROID [Concomitant]
     Dosage: UNK
     Dates: start: 19940101
  10. ALBUTEROL [Concomitant]
  11. HYDROCHLOROTHIAZIDE [Concomitant]
     Dosage: UNK
     Dates: start: 20060101
  12. BACLOFEN [Concomitant]
     Dosage: UNK
     Dates: start: 20060101
  13. VICODIN [Concomitant]
     Dosage: UNK
     Dates: start: 20020101

REACTIONS (1)
  - SUICIDAL IDEATION [None]
